FAERS Safety Report 8418030-1 (Version None)
Quarter: 2012Q2

REPORT INFORMATION
  Report Type: 
  Country: None (occurrence: None)
  Receive Date: 20120607
  Receipt Date: 20120605
  Transmission Date: 20120825
  Serious: Yes (Other)
  Sender: FDA-Public Use
  Company Number: US-BAYER-2012-026654

PATIENT
  Age: 32 Year
  Sex: Female
  Weight: 61.224 kg

DRUGS (1)
  1. MIRENA [Suspect]
     Indication: CONTRACEPTION
     Dosage: 20 MCG/24HR, CONT
     Route: 015
     Dates: start: 20101001, end: 20120209

REACTIONS (3)
  - HAEMORRHAGIC OVARIAN CYST [None]
  - INTRA-ABDOMINAL HAEMORRHAGE [None]
  - ABDOMINAL PAIN UPPER [None]
